FAERS Safety Report 7897870-1 (Version None)
Quarter: 2011Q4

REPORT INFORMATION
  Report Type: 
  Country: None (occurrence: None)
  Receive Date: 20111107
  Receipt Date: 20111031
  Transmission Date: 20120403
  Serious: Yes (Hospitalization)
  Sender: FDA-Public Use
  Company Number: PHHY2011CA91967

PATIENT
  Sex: Female

DRUGS (15)
  1. ZOLEDRONOC ACID [Suspect]
     Indication: OSTEOPOROSIS
     Dosage: 5 MG/100 ML
     Route: 042
     Dates: start: 20080803
  2. COLACE [Concomitant]
  3. ACCUPRIL [Concomitant]
  4. TYLENOL-500 [Concomitant]
  5. ZOLEDRONOC ACID [Suspect]
     Dosage: 5 MG/100 ML
     Route: 042
     Dates: start: 20091014
  6. COUMADIN [Concomitant]
  7. ATIVAN [Concomitant]
  8. RASILEZ [Concomitant]
  9. SIMVASTATIN [Concomitant]
  10. SENOKOT [Concomitant]
  11. VITAMIN D [Concomitant]
  12. CALCIUM [Concomitant]
  13. VITAMIN B-12 [Concomitant]
  14. VERAMIL [Concomitant]
  15. NEXIUM [Concomitant]

REACTIONS (1)
  - INTERVERTEBRAL DISC PROTRUSION [None]
